FAERS Safety Report 4837063-5 (Version None)
Quarter: 2005Q4

REPORT INFORMATION
  Report Type: 
  Country: None (occurrence: None)
  Receive Date: 20051121
  Receipt Date: 20051121
  Transmission Date: 20060501
  Serious: Yes (Hospitalization)
  Sender: FDA-Public Use
  Company Number: None

PATIENT
  Age: 68 Year
  Sex: Male
  Weight: 133 kg

DRUGS (2)
  1. DAPTOMYCIN 500 MG  Q48H [Suspect]
     Indication: CELLULITIS
     Dosage: 500 MG Q48H IV POST-HEMODIALYSIS
     Route: 042
     Dates: start: 20050930, end: 20051008
  2. DAPTOMYCIN 500 MG  Q48H [Suspect]

REACTIONS (2)
  - EOSINOPHIL COUNT INCREASED [None]
  - HAEMODIALYSIS [None]
